FAERS Safety Report 21637229 (Version 4)
Quarter: 2022Q4

REPORT INFORMATION
  Report Type: Report from Study
  Country: FR (occurrence: None)
  Receive Date: 20221124
  Receipt Date: 20221219
  Transmission Date: 20230113
  Serious: Yes (Hospitalization)
  Sender: FDA-Public Use
  Company Number: FR-ROCHE-3215203

PATIENT
  Age: 72 Year
  Sex: Male

DRUGS (17)
  1. ATEZOLIZUMAB [Suspect]
     Active Substance: ATEZOLIZUMAB
     Indication: Prostate cancer metastatic
     Dosage: DAY 1
     Route: 041
     Dates: start: 20221012, end: 20221012
  2. RUCAPARIB [Suspect]
     Active Substance: RUCAPARIB
     Indication: Prostate cancer metastatic
     Dosage: RUCAPARIB ; 350 MG TWICE A DAY FOR 3 WEEKS (21 DAYS) = 25 200 MG C0D1 UNTIL 21-SEP-2022, AND 1260 MG
     Route: 048
     Dates: start: 20220829, end: 20221102
  3. RUCAPARIB [Suspect]
     Active Substance: RUCAPARIB
     Route: 042
     Dates: start: 20220829, end: 20221012
  4. METFORMIN HYDROCHLORIDE [Concomitant]
     Active Substance: METFORMIN HYDROCHLORIDE
  5. METFORMIN HYDROCHLORIDE [Concomitant]
     Active Substance: METFORMIN HYDROCHLORIDE
  6. AMLODIPINE [Concomitant]
     Active Substance: AMLODIPINE BESYLATE
  7. MORPHINE SULFATE [Concomitant]
     Active Substance: MORPHINE SULFATE
  8. SKENAN [Concomitant]
     Active Substance: MORPHINE SULFATE
  9. ESOMEPRAZOLE [Concomitant]
     Active Substance: ESOMEPRAZOLE
  10. ENANTONE LP [Concomitant]
     Active Substance: LEUPROLIDE ACETATE
  11. NALOXEGOL OXALATE [Concomitant]
     Active Substance: NALOXEGOL OXALATE
  12. NEURONTIN [Concomitant]
     Active Substance: GABAPENTIN
     Dosage: PROGRESSIVE DOSE (100 MG IN THE MORNING FOR 5 DAYS THEN 100 MG MORNING
  13. KETOPROFEN [Concomitant]
     Active Substance: KETOPROFEN
     Dosage: PRESCRIBED BY THE EMERGENCY ROOM REPLACED BY CORTICOSTEROID IN HOSPITAL.
  14. ACETAMINOPHEN [Concomitant]
     Active Substance: ACETAMINOPHEN
  15. POLYETHYLENE GLYCOLS [Concomitant]
     Active Substance: POLYETHYLENE GLYCOLS
  16. PRIMPERAN [Concomitant]
     Active Substance: METOCLOPRAMIDE HYDROCHLORIDE
     Dosage: IF NAUSEA.
  17. SOLU-MEDROL [Concomitant]
     Active Substance: METHYLPREDNISOLONE SODIUM SUCCINATE
     Dates: start: 20221122

REACTIONS (4)
  - Musculoskeletal chest pain [Recovered/Resolved]
  - Hypercalcaemia [Recovered/Resolved]
  - Pelvic pain [Recovered/Resolved]
  - Pain in extremity [Recovered/Resolved]

NARRATIVE: CASE EVENT DATE: 20221102
